FAERS Safety Report 4851755-3 (Version None)
Quarter: 2005Q4

REPORT INFORMATION
  Report Type: 
  Country: None (occurrence: None)
  Receive Date: 20051209
  Receipt Date: 20051123
  Transmission Date: 20060501
  Serious: Yes (Hospitalization)
  Sender: FDA-Public Use
  Company Number: S05-FRA-05539-01

PATIENT
  Age: 83 Year
  Sex: Female

DRUGS (6)
  1. MEMANTINE HCL [Suspect]
     Dosage: 2 UNK, QD; PO
     Route: 048
  2. ZYPREXA [Suspect]
     Dosage: 5 MG QD; PO
     Route: 048
  3. ALPRAZOLAM [Suspect]
     Dosage: 0.5 UNK, BID; PO
     Route: 048
  4. SULFARLEM (ANETHOLE TRITHIONE) [Concomitant]
  5. DIAMICRON (GLICLAZIDE) [Concomitant]
  6. AMLODIPINE BESYLATE [Concomitant]

REACTIONS (8)
  - BLOOD PRESSURE SYSTOLIC INCREASED [None]
  - CONFUSIONAL STATE [None]
  - DEHYDRATION [None]
  - DEMENTIA [None]
  - HALLUCINATION [None]
  - OEDEMA PERIPHERAL [None]
  - ORTHOSTATIC INTOLERANCE [None]
  - SPEECH DISORDER [None]
